FAERS Safety Report 7816575-6 (Version None)
Quarter: 2011Q4

REPORT INFORMATION
  Report Type: 
  Country: None (occurrence: None)
  Receive Date: 20111017
  Receipt Date: 20111012
  Transmission Date: 20120403
  Serious: Yes (Other)
  Sender: FDA-Public Use
  Company Number: ZA-PFIZER INC-2011245662

PATIENT
  Age: 85 Year
  Sex: Male

DRUGS (1)
  1. LYRICA [Suspect]
     Indication: NEUROPATHY PERIPHERAL
     Dosage: 75 MG, 2X/DAY (BD)
     Route: 048
     Dates: start: 20110101, end: 20110101

REACTIONS (3)
  - DYSPHAGIA [None]
  - THROAT TIGHTNESS [None]
  - SWOLLEN TONGUE [None]
